FAERS Safety Report 6782697-4 (Version None)
Quarter: 2010Q2

REPORT INFORMATION
  Report Type: 
  Country: None (occurrence: None)
  Receive Date: 20100621
  Receipt Date: 20100614
  Transmission Date: 20101027
  Serious: Yes (Other)
  Sender: FDA-Public Use
  Company Number: GB-ALLERGAN-1006603US

PATIENT
  Age: 59 Year
  Sex: Female

DRUGS (4)
  1. TROSPIUM CHLORIDE UNK [Suspect]
     Indication: MICTURITION URGENCY
     Dosage: 60 MG, QD
     Route: 048
     Dates: start: 20100508, end: 20100510
  2. LEVOTHYROXINE SODIUM [Concomitant]
     Dosage: 50 A?G, QD
  3. FUROSEMIDE [Concomitant]
     Dosage: 40 MG, QD
  4. MEFENAMIC ACID [Concomitant]
     Dosage: 750 MG, BID

REACTIONS (1)
  - DIARRHOEA [None]
